FAERS Safety Report 16308142 (Version 1)
Quarter: 2019Q2

REPORT INFORMATION
  Report Type: Spontaneous
  Country: FR (occurrence: FR)
  Receive Date: 20190514
  Receipt Date: 20190514
  Transmission Date: 20190711
  Serious: Yes (Life-Threatening, Other)
  Sender: FDA-Public Use
  Company Number: FR-AUROBINDO-AUR-APL-2019-025317

PATIENT

DRUGS (2)
  1. OXYCODONE [Suspect]
     Active Substance: OXYCODONE
     Indication: PRODUCT USED FOR UNKNOWN INDICATION
     Dosage: UNK
     Route: 048
     Dates: start: 20190409
  2. OXYCONTIN [Suspect]
     Active Substance: OXYCODONE HYDROCHLORIDE
     Indication: PRODUCT USED FOR UNKNOWN INDICATION
     Dosage: UNK
     Route: 048
     Dates: start: 20190409

REACTIONS (5)
  - Pneumonia aspiration [Recovered/Resolved]
  - Hyperthermia malignant [Recovered/Resolved]
  - Coma [Recovering/Resolving]
  - Miosis [Recovered/Resolved]
  - Poisoning deliberate [Recovering/Resolving]

NARRATIVE: CASE EVENT DATE: 20190409
